FAERS Safety Report 17839681 (Version 2)
Quarter: 2021Q4

REPORT INFORMATION
  Report Type: Report from Study
  Country: US (occurrence: US)
  Receive Date: 20200529
  Receipt Date: 20211215
  Transmission Date: 20220303
  Serious: Yes (Life-Threatening, Other)
  Sender: FDA-Public Use
  Company Number: US-PFIZER INC-2020210164

PATIENT
  Age: 2 Year
  Sex: Male

DRUGS (2)
  1. VINCRISTINE SULFATE [Suspect]
     Active Substance: VINCRISTINE SULFATE
     Indication: Hepatoblastoma
     Dosage: 1.5 MG/M2 (5 DOSES)
  2. VINCRISTINE SULFATE [Suspect]
     Active Substance: VINCRISTINE SULFATE
     Indication: Metastases to lung

REACTIONS (2)
  - Vocal cord paralysis [Recovered/Resolved]
  - Neuropathy peripheral [Unknown]
